FAERS Safety Report 20410888 (Version 3)
Quarter: 2022Q4

REPORT INFORMATION
  Report Type: Spontaneous
  Country: US (occurrence: US)
  Receive Date: 20220201
  Receipt Date: 20221128
  Transmission Date: 20230112
  Serious: Yes (Other)
  Sender: FDA-Public Use
  Company Number: US-SA-SAC20220127000345

PATIENT
  Sex: Female

DRUGS (1)
  1. AUBAGIO [Suspect]
     Active Substance: TERIFLUNOMIDE
     Indication: Multiple sclerosis
     Dosage: 14 MG, QD
     Route: 048
     Dates: start: 20210923

REACTIONS (15)
  - Multiple sclerosis relapse [Not Recovered/Not Resolved]
  - Pruritus [Unknown]
  - Musculoskeletal stiffness [Unknown]
  - Pain [Unknown]
  - Alopecia [Unknown]
  - Back pain [Unknown]
  - Balance disorder [Unknown]
  - Headache [Unknown]
  - Hyperhidrosis [Unknown]
  - Paraesthesia [Unknown]
  - Depression [Unknown]
  - Muscle spasticity [Unknown]
  - Sensory disturbance [Unknown]
  - Fatigue [Unknown]
  - Cognitive disorder [Unknown]

NARRATIVE: CASE EVENT DATE: 20221001
